FAERS Safety Report 19056131 (Version 2)
Quarter: 2021Q2

REPORT INFORMATION
  Report Type: Spontaneous
  Country: FR (occurrence: FR)
  Receive Date: 20210325
  Receipt Date: 20210405
  Transmission Date: 20210717
  Serious: Yes (Life-Threatening, Hospitalization, Other)
  Sender: FDA-Public Use
  Company Number: FR-AMGEN-FRASP2021041877

PATIENT
  Age: 56 Year
  Sex: Male

DRUGS (3)
  1. ESOMEPRAZOLE. [Concomitant]
     Active Substance: ESOMEPRAZOLE MAGNESIUM
     Indication: GASTRINOMA
     Dosage: 120 MILLIGRAM, QD
  2. ESOMEPRAZOLE. [Concomitant]
     Active Substance: ESOMEPRAZOLE MAGNESIUM
     Indication: OESOPHAGITIS ULCERATIVE
     Dosage: 240 MILLIGRAM, QD
  3. CINACALCET HCL [Suspect]
     Active Substance: CINACALCET HYDROCHLORIDE
     Indication: HYPERPARATHYROIDISM PRIMARY
     Dosage: UNK
     Route: 065

REACTIONS (11)
  - Oesophagitis ulcerative [Unknown]
  - Erosive duodenitis [Unknown]
  - Dysphagia [Unknown]
  - Gastrinoma [Unknown]
  - Dehydration [Unknown]
  - Pancreatic mass [Unknown]
  - Renal impairment [Unknown]
  - Hypokalaemia [Unknown]
  - Gastritis hypertrophic [Unknown]
  - Hypomagnesaemia [Recovering/Resolving]
  - Metabolic alkalosis [Unknown]

NARRATIVE: CASE EVENT DATE: 20180619
